FAERS Safety Report 15744593 (Version 1)
Quarter: 2018Q4

REPORT INFORMATION
  Report Type: Spontaneous
  Country: US (occurrence: US)
  Receive Date: 20181218
  Receipt Date: 20181218
  Transmission Date: 20190205
  Serious: Yes (Life-Threatening, Disabling, Other)
  Sender: FDA-Public Use
  Company Number: None

PATIENT
  Age: 24 Year
  Sex: Female
  Weight: 47.25 kg

DRUGS (2)
  1. CMP PROGESTERONE 150MG/ML CREA #30 [Suspect]
     Active Substance: PROGESTERONE
     Indication: ANXIETY
     Dosage: ?          QUANTITY:4 CLICKS;?
     Route: 061
  2. CMP PROGESTERONE 150MG/ML CREA #30 [Suspect]
     Active Substance: PROGESTERONE
     Indication: HORMONE LEVEL ABNORMAL
     Dosage: ?          QUANTITY:4 CLICKS;?
     Route: 061

REACTIONS (10)
  - Fatigue [None]
  - Loss of personal independence in daily activities [None]
  - Blood potassium increased [None]
  - Fibroadenoma of breast [None]
  - Impaired work ability [None]
  - Chest discomfort [None]
  - Blood sodium decreased [None]
  - Postural orthostatic tachycardia syndrome [None]
  - Fear of death [None]
  - Lung disorder [None]

NARRATIVE: CASE EVENT DATE: 20161103
